FAERS Safety Report 25671227 (Version 2)
Quarter: 2025Q4

REPORT INFORMATION
  Report Type: Report from Study
  Country: US (occurrence: US)
  Receive Date: 20250812
  Receipt Date: 20251109
  Transmission Date: 20260117
  Serious: No
  Sender: LUNDBECK
  Company Number: US-LUNDBECK-DKLU4018002

PATIENT
  Age: 68 Year
  Sex: Female

DRUGS (1)
  1. VYEPTI [Suspect]
     Active Substance: EPTINEZUMAB-JJMR
     Indication: Product used for unknown indication
     Dosage: 100 MILLIGRAM
     Route: 041

REACTIONS (2)
  - Drug effect less than expected [Unknown]
  - Drug ineffective [Unknown]
